FAERS Safety Report 8489486-3 (Version None)
Quarter: 2012Q3

REPORT INFORMATION
  Report Type: 
  Country: None (occurrence: None)
  Receive Date: 20120705
  Receipt Date: 20120702
  Transmission Date: 20120928
  Serious: No
  Sender: FDA-Public Use
  Company Number: US-PFIZER INC-2012158800

PATIENT
  Sex: Female

DRUGS (2)
  1. IBUPROFEN (ADVIL) [Suspect]
     Dosage: 600 MG, UNK
     Route: 048
  2. IBUPROFEN (ADVIL) [Suspect]
     Dosage: 200 MG, UNK
     Route: 048

REACTIONS (2)
  - MOBILITY DECREASED [None]
  - INCORRECT DOSE ADMINISTERED [None]
